FAERS Safety Report 9714221 (Version 1)
Quarter: 2013Q4

REPORT INFORMATION
  Report Type: Spontaneous
  Country: US (occurrence: US)
  Receive Date: 20131126
  Receipt Date: 20131126
  Transmission Date: 20140711
  Serious: No
  Sender: FDA-Public Use
  Company Number: US-GILEAD-2008-0019409

PATIENT
  Sex: Male
  Weight: 120.2 kg

DRUGS (11)
  1. LETAIRIS [Suspect]
     Indication: COR PULMONALE CHRONIC
     Route: 048
     Dates: start: 20081121
  2. REVATIO [Concomitant]
  3. LASIX [Concomitant]
  4. HCTZ [Concomitant]
  5. PRAVACHOL [Concomitant]
  6. METOPROLOL [Concomitant]
  7. DIOVAN [Concomitant]
  8. NIACIN [Concomitant]
  9. POTASSIUM CHLORIDE [Concomitant]
  10. FOLIC ACID [Concomitant]
  11. CENTRUM [Concomitant]

REACTIONS (2)
  - Oedema [None]
  - Dyspnoea [None]
